FAERS Safety Report 18275787 (Version 3)
Quarter: 2021Q2

REPORT INFORMATION
  Report Type: Report from Study
  Country: JP (occurrence: JP)
  Receive Date: 20200916
  Receipt Date: 20210618
  Transmission Date: 20210717
  Serious: Yes (Other)
  Sender: FDA-Public Use
  Company Number: JP-ALXN-A202013140AA

PATIENT
  Age: 7 Month
  Sex: Male
  Weight: 4.9 kg

DRUGS (9)
  1. TADALAFIL. [Concomitant]
     Active Substance: TADALAFIL
     Indication: HYPOPHOSPHATASIA
     Dosage: 0.5?1MG/KG/DAY, QD
     Route: 048
     Dates: start: 20190803
  2. STRENSIQ [Suspect]
     Active Substance: ASFOTASE ALFA
     Indication: HYPOPHOSPHATASIA
     Dosage: 2 MG/KG, TIW
     Route: 058
     Dates: start: 20190320
  3. CALCIUM COMPOUNDS [Concomitant]
     Indication: HYPOPHOSPHATASIA
     Dosage: UNK
     Route: 041
     Dates: start: 20190315, end: 20191218
  4. ADCIRCA [Concomitant]
     Active Substance: TADALAFIL
     Indication: PULMONARY HYPERTENSION
     Dosage: 0.5 MG, QD
     Route: 048
     Dates: start: 20190803
  5. SODIUM PHOSPHATE [Concomitant]
     Active Substance: SODIUM PHOSPHATE
     Indication: HYPOPHOSPHATASIA
     Dosage: UNK
     Route: 041
     Dates: start: 20190321, end: 20200107
  6. BOSENTAN. [Concomitant]
     Active Substance: BOSENTAN
     Indication: PULMONARY HYPERTENSION
  7. PYDOXAL [Concomitant]
     Active Substance: PYRIDOXAL
     Indication: HYPOPHOSPHATASIA
     Dosage: 10?20MG/KG/DAY, BID
     Route: 048
     Dates: start: 20190406
  8. PYDOXAL [Concomitant]
     Active Substance: PYRIDOXAL
     Indication: SEIZURE
  9. BOSENTAN. [Concomitant]
     Active Substance: BOSENTAN
     Indication: HYPOPHOSPHATASIA
     Dosage: 1?4MG/KG/DAY, BID
     Route: 048
     Dates: start: 20190701

REACTIONS (4)
  - Primary hypothyroidism [Recovering/Resolving]
  - Craniosynostosis [Not Recovered/Not Resolved]
  - Seizure [Recovering/Resolving]
  - Nephrocalcinosis [Recovering/Resolving]

NARRATIVE: CASE EVENT DATE: 20191019
